FAERS Safety Report 25838745 (Version 1)
Quarter: 2025Q3

REPORT INFORMATION
  Report Type: Spontaneous
  Country: US (occurrence: US)
  Receive Date: 20250924
  Receipt Date: 20250924
  Transmission Date: 20251020
  Serious: Yes (Other)
  Sender: CHEPLAPHARM
  Company Number: US-CHEPLA-2025011111

PATIENT
  Sex: Male

DRUGS (27)
  1. CAPECITABINE [Suspect]
     Active Substance: CAPECITABINE
     Indication: Colon cancer stage III
     Route: 048
  2. TECENTRIQ [Suspect]
     Active Substance: ATEZOLIZUMAB
     Route: 048
  3. AVASTIN [Suspect]
     Active Substance: BEVACIZUMAB
     Route: 048
  4. FLUOROURACIL\LEUCOVORIN CALCIUM\OXALIPLATIN [Concomitant]
     Active Substance: FLUOROURACIL\LEUCOVORIN CALCIUM\OXALIPLATIN
  5. CLARITIN [Concomitant]
     Active Substance: LORATADINE
  6. COMPAZINE [Concomitant]
     Active Substance: PROCHLORPERAZINE MALEATE
  7. ZOFRAN [Concomitant]
     Active Substance: ONDANSETRON HYDROCHLORIDE
  8. ATEZOLIZUMAB [Concomitant]
     Active Substance: ATEZOLIZUMAB
  9. OXALIPLATIN [Concomitant]
     Active Substance: OXALIPLATIN
  10. ENALAPRIL [Concomitant]
     Active Substance: ENALAPRIL
  11. AMLODIPINE [Concomitant]
     Active Substance: AMLODIPINE BESYLATE
  12. ASPIRIN [Concomitant]
     Active Substance: ASPIRIN
  13. ATORVASTATIN [Concomitant]
     Active Substance: ATORVASTATIN
  14. BENAZEPRIL [Concomitant]
     Active Substance: BENAZEPRIL HYDROCHLORIDE
  15. CITALOPRAM [Concomitant]
     Active Substance: CITALOPRAM
  16. EMLA [Concomitant]
     Active Substance: LIDOCAINE\PRILOCAINE
  17. Hydrazaline [Concomitant]
  18. Isororbide mononitrate [Concomitant]
  19. JARDIANCE [Concomitant]
     Active Substance: EMPAGLIFLOZIN
  20. LOSARTAN [Concomitant]
     Active Substance: LOSARTAN
  21. OZEMPIC [Concomitant]
     Active Substance: SEMAGLUTIDE
  22. PANTOPRAZOLE [Concomitant]
     Active Substance: PANTOPRAZOLE
  23. PIOGLITAZONE [Concomitant]
     Active Substance: PIOGLITAZONE
  24. RANOLAZINE [Concomitant]
     Active Substance: RANOLAZINE
  25. TRESIBA [Concomitant]
     Active Substance: INSULIN DEGLUDEC
  26. Sod-Sul-Potassium [Concomitant]
  27. Sul-MAg solution [Concomitant]

REACTIONS (6)
  - Agranulocytosis [Unknown]
  - Hepatic cirrhosis [Unknown]
  - Iron deficiency anaemia [Unknown]
  - Hyperlipidaemia [Unknown]
  - Cardiac disorder [Unknown]
  - Hypertension [Unknown]
